FAERS Safety Report 5456717-3 (Version None)
Quarter: 2007Q3

REPORT INFORMATION
  Report Type: 
  Country: None (occurrence: None)
  Receive Date: 20070918
  Receipt Date: 20070228
  Transmission Date: 20080115
  Serious: Yes (Hospitalization)
  Sender: FDA-Public Use
  Company Number: US-ASTRAZENECA-2006UW26116

PATIENT
  Sex: Male
  Weight: 164.1 kg

DRUGS (4)
  1. SEROQUEL [Suspect]
     Indication: BIPOLAR DISORDER
     Route: 048
     Dates: start: 20051101
  2. SEROQUEL [Suspect]
     Indication: SCHIZOPHRENIA
     Route: 048
     Dates: start: 20051101
  3. ZYPREXA [Concomitant]
     Route: 048
     Dates: start: 19950101, end: 20051001
  4. HALDOL [Concomitant]
     Dates: start: 19890101, end: 19950101

REACTIONS (1)
  - DIABETES MELLITUS [None]
